FAERS Safety Report 9844824 (Version 1)
Quarter: 2014Q1

REPORT INFORMATION
  Report Type: Spontaneous
  Country: GB (occurrence: None)
  Receive Date: 20140122
  Receipt Date: 20140122
  Transmission Date: 20141002
  Serious: Yes (Other)
  Sender: FDA-Public Use
  Company Number: AUR-APL-2014-00372

PATIENT
  Age: 60 Year
  Sex: Male
  Weight: 112 kg

DRUGS (6)
  1. BISOPROLOL (BISOPROLOL) [Suspect]
     Indication: ATRIAL FIBRILLATION
     Route: 048
  2. AMLODIPINE (AMLODIPINE) [Concomitant]
  3. FUROSEMIDE (FUROSEMIDE) [Concomitant]
  4. VALSARTAN (VALSARTAN) [Concomitant]
  5. WARFARIN (WARFARIN) [Concomitant]
  6. ZANTAC (RANITIDINE HYDROCHLORIDE) [Concomitant]

REACTIONS (2)
  - Anxiety [None]
  - Anger [None]
